FAERS Safety Report 6581124-X (Version None)
Quarter: 2010Q1

REPORT INFORMATION
  Report Type: 
  Country: None (occurrence: None)
  Receive Date: 20100215
  Receipt Date: 20100210
  Transmission Date: 20100710
  Serious: Yes (Other)
  Sender: FDA-Public Use
  Company Number: PHHY2010BR07522

PATIENT
  Age: 52 Year
  Sex: Female

DRUGS (4)
  1. PARLODEL [Suspect]
     Dosage: 5 MG, UNK
  2. PARLODEL [Suspect]
     Dosage: 2.5 MG, UNK
  3. PARLODEL [Suspect]
     Dosage: 5 MG, UNK
  4. PARLODEL [Suspect]
     Dosage: 2.5 MG, UNK

REACTIONS (2)
  - COELIAC DISEASE [None]
  - DRUG DISPENSING ERROR [None]
